FAERS Safety Report 4981523-3 (Version None)
Quarter: 2006Q2

REPORT INFORMATION
  Report Type: 
  Country: None (occurrence: None)
  Receive Date: 20060424
  Receipt Date: 20050421
  Transmission Date: 20061013
  Serious: Yes (Hospitalization, Disabling)
  Sender: FDA-Public Use
  Company Number: US-MERCK-0504USA04232

PATIENT
  Age: 62 Year
  Sex: Female
  Weight: 114 kg

DRUGS (8)
  1. VIOXX [Suspect]
     Indication: ARTHRALGIA
     Route: 048
     Dates: start: 19990101
  2. VIOXX [Suspect]
     Route: 048
     Dates: start: 20010201
  3. LOPRESSOR [Concomitant]
     Route: 048
  4. EVISTA [Concomitant]
     Route: 048
  5. VASOTEC [Concomitant]
     Route: 048
  6. PINDOLOL [Concomitant]
     Route: 048
  7. SINGULAIR [Concomitant]
     Route: 048
  8. PROPOXYPHENE HYDROCHLORIDE [Concomitant]
     Route: 065

REACTIONS (29)
  - ABDOMINAL DISCOMFORT [None]
  - ANGINA PECTORIS [None]
  - ARTHROPATHY [None]
  - BENIGN NEOPLASM [None]
  - CARPAL TUNNEL SYNDROME [None]
  - CEREBROVASCULAR ACCIDENT [None]
  - CHEST DISCOMFORT [None]
  - CHRONIC OBSTRUCTIVE PULMONARY DISEASE [None]
  - CORONARY ARTERY DISEASE [None]
  - COSTOCHONDRITIS [None]
  - COUGH [None]
  - GALLBLADDER DISORDER [None]
  - GASTROOESOPHAGEAL REFLUX DISEASE [None]
  - HAEMORRHOIDS [None]
  - HERNIA [None]
  - HYPERLIPIDAEMIA [None]
  - HYPERTENSION [None]
  - JOINT SPRAIN [None]
  - LIPOMA [None]
  - MYOCARDIAL INFARCTION [None]
  - OEDEMA PERIPHERAL [None]
  - OSTEOARTHRITIS [None]
  - PAIN IN EXTREMITY [None]
  - PALPITATIONS [None]
  - PEPTIC ULCER [None]
  - SLEEP APNOEA SYNDROME [None]
  - SYNOVITIS [None]
  - TENDONITIS [None]
  - URINARY TRACT INFECTION [None]
